FAERS Safety Report 16693587 (Version 2)
Quarter: 2019Q3

REPORT INFORMATION
  Report Type: Spontaneous
  Country: CA (occurrence: CA)
  Receive Date: 20190812
  Receipt Date: 20190924
  Transmission Date: 20191004
  Serious: Yes (Death)
  Sender: FDA-Public Use
  Company Number: CA-PFIZER INC-2019342490

PATIENT
  Age: 74 Year
  Sex: Female

DRUGS (5)
  1. VERSED [Suspect]
     Active Substance: MIDAZOLAM HYDROCHLORIDE
     Indication: SEDATIVE THERAPY
     Dosage: UNK
  2. MORPHINE [Concomitant]
     Active Substance: MORPHINE
     Indication: WRIST FRACTURE
     Dosage: 5 MG, UNK
     Route: 042
  3. MORPHINE [Concomitant]
     Active Substance: MORPHINE
     Indication: PARKINSON^S DISEASE
     Dosage: 2 MG, UNK
  4. VERSED [Suspect]
     Active Substance: MIDAZOLAM HYDROCHLORIDE
     Indication: SEDATION
     Dosage: 5 MG, UNK
  5. MORPHINE [Concomitant]
     Active Substance: MORPHINE
     Indication: PREMEDICATION

REACTIONS (3)
  - Overdose [Fatal]
  - Respiratory failure [Fatal]
  - Pneumonia aspiration [Fatal]
